FAERS Safety Report 5670040-3 (Version None)
Quarter: 2008Q1

REPORT INFORMATION
  Report Type: 
  Country: None (occurrence: None)
  Receive Date: 20080312
  Receipt Date: 20080229
  Transmission Date: 20080703
  Serious: Yes (Hospitalization)
  Sender: FDA-Public Use
  Company Number: 2008AL001258

PATIENT
  Age: 76 Year
  Sex: Female

DRUGS (5)
  1. PROPRANOLOL [Suspect]
     Indication: ANXIETY
     Dosage: 80 MG
  2. PROPRANOLOL [Suspect]
     Indication: ESSENTIAL TREMOR
     Dosage: 80 MG
  3. DONEPEZIL HCL [Concomitant]
  4. OMEPRAZOLE [Concomitant]
  5. ESCITALOPRAM OXALATE [Concomitant]

REACTIONS (5)
  - BLOOD PRESSURE INCREASED [None]
  - ELECTROCARDIOGRAM QT PROLONGED [None]
  - SINUS BRADYCARDIA [None]
  - SYNCOPE [None]
  - TORSADE DE POINTES [None]
